FAERS Safety Report 5775462-8 (Version None)
Quarter: 2008Q2

REPORT INFORMATION
  Report Type: 
  Country: None (occurrence: None)
  Receive Date: 20080612
  Receipt Date: 20080528
  Transmission Date: 20081010
  Serious: Yes (Hospitalization)
  Sender: FDA-Public Use
  Company Number: 2008BI005872

PATIENT
  Sex: Female
  Weight: 76 kg

DRUGS (5)
  1. AVONEX [Suspect]
     Indication: MULTIPLE SCLEROSIS
     Dosage: ; QW; IM
     Route: 030
     Dates: start: 20030218
  2. TEGRETOL [Concomitant]
  3. NEURONTIN [Concomitant]
  4. LODINE [Concomitant]
  5. AMITRIPTYLINE HCL [Concomitant]

REACTIONS (6)
  - ANTIPSYCHOTIC DRUG LEVEL BELOW THERAPEUTIC [None]
  - BACK PAIN [None]
  - CELLULITIS [None]
  - CONDITION AGGRAVATED [None]
  - DEHYDRATION [None]
  - LOSS OF CONSCIOUSNESS [None]
